FAERS Safety Report 15581252 (Version 16)
Quarter: 2022Q2

REPORT INFORMATION
  Report Type: Other
  Country: CA (occurrence: CA)
  Receive Date: 20181105
  Receipt Date: 20220413
  Transmission Date: 20220721
  Serious: Yes (Hospitalization, Other)
  Sender: FDA-Public Use
  Company Number: CA-002147023-PHHY2017CA010175

PATIENT
  Age: 54 Year
  Sex: Female

DRUGS (25)
  1. XOLAIR [Suspect]
     Active Substance: OMALIZUMAB
     Indication: Asthma
     Route: 058
     Dates: start: 20170105
  2. XOLAIR [Suspect]
     Active Substance: OMALIZUMAB
     Route: 058
     Dates: start: 20170119
  3. XOLAIR [Suspect]
     Active Substance: OMALIZUMAB
     Route: 058
     Dates: start: 20170131
  4. XOLAIR [Suspect]
     Active Substance: OMALIZUMAB
     Route: 058
     Dates: start: 20170221
  5. XOLAIR [Suspect]
     Active Substance: OMALIZUMAB
     Route: 058
     Dates: start: 20170307
  6. XOLAIR [Suspect]
     Active Substance: OMALIZUMAB
     Route: 058
     Dates: start: 20170321
  7. XOLAIR [Suspect]
     Active Substance: OMALIZUMAB
     Route: 058
     Dates: start: 20170404
  8. XOLAIR [Suspect]
     Active Substance: OMALIZUMAB
     Route: 058
     Dates: start: 20170418
  9. XOLAIR [Suspect]
     Active Substance: OMALIZUMAB
     Route: 058
     Dates: start: 20170502
  10. XOLAIR [Suspect]
     Active Substance: OMALIZUMAB
     Route: 058
     Dates: start: 20170629
  11. XOLAIR [Suspect]
     Active Substance: OMALIZUMAB
     Route: 058
     Dates: start: 20170711
  12. XOLAIR [Suspect]
     Active Substance: OMALIZUMAB
     Route: 058
     Dates: start: 20170919
  13. XOLAIR [Suspect]
     Active Substance: OMALIZUMAB
     Route: 058
     Dates: start: 20171017
  14. XOLAIR [Suspect]
     Active Substance: OMALIZUMAB
     Route: 058
     Dates: start: 20180208
  15. XOLAIR [Suspect]
     Active Substance: OMALIZUMAB
     Route: 058
     Dates: start: 20180717
  16. XOLAIR [Suspect]
     Active Substance: OMALIZUMAB
     Route: 058
     Dates: start: 20180816
  17. XOLAIR [Suspect]
     Active Substance: OMALIZUMAB
     Route: 058
     Dates: start: 20180828
  18. XOLAIR [Suspect]
     Active Substance: OMALIZUMAB
     Route: 058
     Dates: start: 20181023
  19. XOLAIR [Suspect]
     Active Substance: OMALIZUMAB
     Route: 058
     Dates: start: 20190105
  20. XOLAIR [Suspect]
     Active Substance: OMALIZUMAB
     Route: 058
     Dates: start: 20190322
  21. MONTELUKAST [Concomitant]
     Active Substance: MONTELUKAST SODIUM
     Indication: Product used for unknown indication
     Route: 065
  22. SYMBICORT [Concomitant]
     Active Substance: BUDESONIDE\FORMOTEROL FUMARATE DIHYDRATE
     Indication: Product used for unknown indication
     Dosage: 2 DF, BID
     Route: 065
  23. SPIRIVA [Concomitant]
     Active Substance: TIOTROPIUM BROMIDE MONOHYDRATE
     Indication: Product used for unknown indication
     Dosage: 2 DF, QD
     Route: 065
  24. ALBUTEROL [Concomitant]
     Active Substance: ALBUTEROL
     Dosage: UNK
     Route: 065
  25. PREDNISONE [Concomitant]
     Active Substance: PREDNISONE
     Route: 065

REACTIONS (47)
  - Postoperative wound infection [Unknown]
  - Abdominal pain upper [Recovering/Resolving]
  - Gallbladder enlargement [Recovering/Resolving]
  - Vomiting [Recovering/Resolving]
  - Hallucination [Unknown]
  - Joint dislocation [Unknown]
  - Bronchitis [Recovering/Resolving]
  - Headache [Not Recovered/Not Resolved]
  - Irritable bowel syndrome [Unknown]
  - Chest pain [Recovered/Resolved]
  - Asthenia [Recovered/Resolved]
  - Joint injury [Unknown]
  - Arthralgia [Unknown]
  - Nasopharyngitis [Recovering/Resolving]
  - Nasal congestion [Recovering/Resolving]
  - Weight decreased [Unknown]
  - Fungal infection [Unknown]
  - Blister [Unknown]
  - Seizure [Unknown]
  - Loss of consciousness [Unknown]
  - Posterior reversible encephalopathy syndrome [Unknown]
  - Diplopia [Not Recovered/Not Resolved]
  - Brain oedema [Unknown]
  - Blindness [Unknown]
  - Wheezing [Not Recovered/Not Resolved]
  - Amnesia [Unknown]
  - Staphylococcal infection [Not Recovered/Not Resolved]
  - Sputum discoloured [Unknown]
  - Productive cough [Unknown]
  - Cough [Recovering/Resolving]
  - Lower respiratory tract infection [Recovering/Resolving]
  - Hyperhidrosis [Recovered/Resolved]
  - Injection site irritation [Unknown]
  - Mobility decreased [Unknown]
  - Osteoporosis [Unknown]
  - Arterial stenosis [Unknown]
  - Hypoaesthesia [Recovered/Resolved]
  - Crohn^s disease [Unknown]
  - Post procedural infection [Unknown]
  - Heart rate increased [Unknown]
  - Pain in extremity [Unknown]
  - Peripheral swelling [Unknown]
  - Gait disturbance [Not Recovered/Not Resolved]
  - Cerebrovascular accident [Unknown]
  - Diarrhoea [Unknown]
  - Malaise [Recovering/Resolving]
  - Acetabulum fracture [Unknown]

NARRATIVE: CASE EVENT DATE: 20170119
